FAERS Safety Report 15427530 (Version 2)
Quarter: 2018Q4

REPORT INFORMATION
  Report Type: Report from Study
  Country: US (occurrence: US)
  Receive Date: 20180925
  Receipt Date: 20181103
  Transmission Date: 20190204
  Serious: Yes (Death)
  Sender: FDA-Public Use
  Company Number: PHEH2018US039800

PATIENT
  Sex: Male
  Weight: 112.2 kg

DRUGS (1)
  1. AFINITOR [Suspect]
     Active Substance: EVEROLIMUS
     Indication: PRODUCT USED FOR UNKNOWN INDICATION
     Dosage: 10 MG, UNK
     Route: 065
     Dates: start: 20170918, end: 20171221

REACTIONS (1)
  - Death [Fatal]
